FAERS Safety Report 16237286 (Version 1)
Quarter: 2019Q2

REPORT INFORMATION
  Report Type: Spontaneous
  Country: MX (occurrence: MX)
  Receive Date: 20190425
  Receipt Date: 20190425
  Transmission Date: 20190711
  Serious: Yes (Hospitalization)
  Sender: FDA-Public Use
  Company Number: MX-BAYER-2019-082160

PATIENT
  Age: 38 Week
  Sex: Female

DRUGS (1)
  1. INTERFERON BETA - 1B [Suspect]
     Active Substance: INTERFERON BETA-1B
     Indication: MULTIPLE SCLEROSIS
     Dosage: UNK
     Route: 065

REACTIONS (7)
  - Maternal exposure during pregnancy [None]
  - Facial pain [None]
  - Premature delivery [None]
  - Pallor [None]
  - Peritoneal haemorrhage [None]
  - Abdominal pain upper [None]
  - Heterotopic pregnancy [None]
